FAERS Safety Report 14890321 (Version 1)
Quarter: 2018Q2

REPORT INFORMATION
  Report Type: Spontaneous
  Country: US (occurrence: US)
  Receive Date: 20180514
  Receipt Date: 20180514
  Transmission Date: 20180711
  Serious: Yes (Hospitalization, Other)
  Sender: FDA-Public Use
  Company Number: US-ACCORD-067025

PATIENT
  Age: 10 Year
  Sex: Male

DRUGS (2)
  1. COLCHICINE. [Suspect]
     Active Substance: COLCHICINE
     Dosage: 0.2 MG/KG; 8 X 0.6-MG TABLETS
     Route: 048
  2. FUROSEMIDE. [Suspect]
     Active Substance: FUROSEMIDE
     Dosage: 10 MG/KG; 6 X 40-MG TABLETS
     Route: 048

REACTIONS (11)
  - Dizziness [Recovered/Resolved]
  - Vomiting [Recovered/Resolved]
  - Electrolyte imbalance [Recovered/Resolved]
  - Electrocardiogram PR prolongation [Recovered/Resolved]
  - Tachycardia [Recovered/Resolved]
  - Abdominal pain [Recovered/Resolved]
  - Atrioventricular block second degree [Recovered/Resolved]
  - Toxicity to various agents [Unknown]
  - Accidental exposure to product [Unknown]
  - Sinus bradycardia [Recovered/Resolved]
  - Sinus arrhythmia [Recovered/Resolved]
